FAERS Safety Report 24250112 (Version 1)
Quarter: 2024Q3

REPORT INFORMATION
  Report Type: Spontaneous
  Country: AR (occurrence: AR)
  Receive Date: 20240826
  Receipt Date: 20240826
  Transmission Date: 20241016
  Serious: Yes (Hospitalization)
  Sender: SANDOZ
  Company Number: AR-SANDOZ-SDZ2024AR073673

PATIENT
  Age: 12 Year
  Sex: Female
  Weight: 40 kg

DRUGS (2)
  1. OMNITROPE [Suspect]
     Active Substance: SOMATROPIN
     Indication: Growth hormone deficiency
     Dosage: 0.55, 7 TIMES PER WEEK
     Route: 058
     Dates: start: 20210202
  2. OMNITROPE [Suspect]
     Active Substance: SOMATROPIN
     Indication: Growth retardation

REACTIONS (3)
  - Shunt malfunction [Unknown]
  - Wound drainage [Unknown]
  - Headache [Unknown]

NARRATIVE: CASE EVENT DATE: 20240808
